FAERS Safety Report 21128237 (Version 3)
Quarter: 2022Q3

REPORT INFORMATION
  Report Type: Spontaneous
  Country: US (occurrence: US)
  Receive Date: 20220725
  Receipt Date: 20220728
  Transmission Date: 20221026
  Serious: No
  Sender: FDA-Public Use
  Company Number: US-PFIZER INC-202201000477

PATIENT
  Age: 73 Year
  Sex: Male
  Weight: 83.91 kg

DRUGS (1)
  1. CHANTIX [Suspect]
     Active Substance: VARENICLINE TARTRATE
     Dosage: UNK
     Dates: start: 202206, end: 202207

REACTIONS (2)
  - Insomnia [Recovered/Resolved]
  - Nausea [Recovered/Resolved]
